FAERS Safety Report 11300158 (Version 1)
Quarter: 2015Q3

REPORT INFORMATION
  Report Type: Spontaneous
  Country: US (occurrence: US)
  Receive Date: 20150722
  Receipt Date: 20150722
  Transmission Date: 20151125
  Serious: No
  Sender: FDA-Public Use
  Company Number: US-ELI_LILLY_AND_COMPANY-US201305007397

PATIENT
  Sex: Male
  Weight: 32 kg

DRUGS (4)
  1. HUMATROPE [Suspect]
     Active Substance: SOMATROPIN
     Indication: HYPOPITUITARISM
     Dosage: 1.2 MG, QD
     Route: 058
     Dates: start: 2008
  2. DDAVP [Concomitant]
     Active Substance: DESMOPRESSIN ACETATE
  3. CORTEF [Concomitant]
     Active Substance: HYDROCORTISONE
  4. LEVOTHYROXINE. [Concomitant]
     Active Substance: LEVOTHYROXINE

REACTIONS (2)
  - Tic [Unknown]
  - Attention deficit/hyperactivity disorder [Unknown]
